FAERS Safety Report 15457608 (Version 1)
Quarter: 2018Q4

REPORT INFORMATION
  Report Type: Report from Study
  Country: None (occurrence: US)
  Receive Date: 20181003
  Receipt Date: 20181003
  Transmission Date: 20190204
  Serious: Yes (Hospitalization)
  Sender: FDA-Public Use
  Company Number: US-ABBVIE-18K-163-2488498-00

PATIENT
  Age: 44 Year
  Sex: Female
  Weight: 106.69 kg

DRUGS (1)
  1. HUMIRA [Suspect]
     Active Substance: ADALIMUMAB
     Indication: HIDRADENITIS
     Route: 058
     Dates: start: 20180816

REACTIONS (7)
  - Ear discomfort [Unknown]
  - Rash [Unknown]
  - Upper respiratory tract infection [Unknown]
  - Productive cough [Unknown]
  - Adnexal torsion [Unknown]
  - Injection site erythema [Not Recovered/Not Resolved]
  - Sputum discoloured [Unknown]

NARRATIVE: CASE EVENT DATE: 2018
